FAERS Safety Report 6327963-1 (Version None)
Quarter: 2009Q3

REPORT INFORMATION
  Report Type: 
  Country: None (occurrence: None)
  Receive Date: 20090824
  Receipt Date: 20090810
  Transmission Date: 20100115
  Serious: Yes (Disabling)
  Sender: FDA-Public Use
  Company Number: RENA-1000522

PATIENT
  Age: 43 Year
  Sex: Male

DRUGS (1)
  1. RENAGEL [Suspect]
     Indication: HYPERPHOSPHATAEMIA
     Dosage: 1.6 G, BID, ORAL
     Route: 048
     Dates: start: 20090601

REACTIONS (2)
  - ABASIA [None]
  - MUSCULAR WEAKNESS [None]
